FAERS Safety Report 23527193 (Version 4)
Quarter: 2025Q1

REPORT INFORMATION
  Report Type: Spontaneous
  Country: US (occurrence: US)
  Receive Date: 20240215
  Receipt Date: 20250314
  Transmission Date: 20250409
  Serious: Yes (Hospitalization, Disabling, Other)
  Sender: SANOFI AVENTIS
  Company Number: US-SA-SAC20240210000017

PATIENT
  Age: 84 Year
  Sex: Female
  Weight: 60 kg

DRUGS (1)
  1. REZUROCK [Suspect]
     Active Substance: BELUMOSUDIL
     Indication: Graft versus host disease
     Dosage: 200 MG, QD
     Route: 048
     Dates: start: 20220627

REACTIONS (8)
  - Gait disturbance [Unknown]
  - Loss of personal independence in daily activities [Unknown]
  - Nervous system disorder [Unknown]
  - Influenza [Unknown]
  - Pneumonia [Unknown]
  - Asthenia [Unknown]
  - Dizziness [Unknown]
  - Diarrhoea [Unknown]
